FAERS Safety Report 17089442 (Version 1)
Quarter: 2019Q4

REPORT INFORMATION
  Report Type: Spontaneous
  Country: NL (occurrence: NL)
  Receive Date: 20191128
  Receipt Date: 20191128
  Transmission Date: 20200122
  Serious: Yes (Other)
  Sender: FDA-Public Use
  Company Number: NL-009507513-1911NLD010320

PATIENT
  Sex: Female

DRUGS (1)
  1. LETERMOVIR [Suspect]
     Active Substance: LETERMOVIR
     Dosage: UNK
     Route: 048

REACTIONS (3)
  - Cytomegalovirus infection [Unknown]
  - Treatment noncompliance [Unknown]
  - Off label use [Unknown]
